FAERS Safety Report 23940057 (Version 3)
Quarter: 2024Q3

REPORT INFORMATION
  Report Type: Report from Study
  Country: US (occurrence: US)
  Receive Date: 20240605
  Receipt Date: 20240803
  Transmission Date: 20241017
  Serious: Yes (Other)
  Sender: ABBVIE
  Company Number: US-ABBVIE-5773046

PATIENT
  Age: 52 Year
  Sex: Male

DRUGS (1)
  1. RINVOQ [Suspect]
     Active Substance: UPADACITINIB
     Indication: Crohn^s disease
     Route: 048
     Dates: start: 20230903

REACTIONS (15)
  - Vascular occlusion [Unknown]
  - Dyspnoea [Recovered/Resolved]
  - Blood glucose increased [Unknown]
  - Chest discomfort [Recovered/Resolved]
  - Myocardial necrosis marker increased [Unknown]
  - Chest pain [Not Recovered/Not Resolved]
  - Dyspnoea [Unknown]
  - Tooth loss [Unknown]
  - Chest discomfort [Unknown]
  - Angina pectoris [Not Recovered/Not Resolved]
  - Arterial occlusive disease [Unknown]
  - Overdose [Unknown]
  - Dehydration [Unknown]
  - Blood pressure decreased [Unknown]
  - Hypertension [Not Recovered/Not Resolved]

NARRATIVE: CASE EVENT DATE: 20240401
